FAERS Safety Report 9356253 (Version 1)
Quarter: 2013Q2

REPORT INFORMATION
  Report Type: Spontaneous
  Country: US (occurrence: US)
  Receive Date: 20130619
  Receipt Date: 20130619
  Transmission Date: 20140414
  Serious: Yes (Hospitalization)
  Sender: FDA-Public Use
  Company Number: US-BAYER-2013-073792

PATIENT
  Age: 38 Year
  Sex: Female

DRUGS (4)
  1. YAZ [Suspect]
  2. IMITREX [Concomitant]
     Dosage: UNK
     Dates: start: 20100202
  3. TOPAMAX [Concomitant]
     Dosage: UNK
     Dates: start: 20100203
  4. TOPIRAMATE [Concomitant]
     Dosage: 50 MG, UNK

REACTIONS (1)
  - Deep vein thrombosis [None]
